FAERS Safety Report 15711233 (Version 1)
Quarter: 2018Q4

REPORT INFORMATION
  Report Type: Report from Study
  Country: ZA (occurrence: ZA)
  Receive Date: 20181211
  Receipt Date: 20181211
  Transmission Date: 20190205
  Serious: Yes (Hospitalization)
  Sender: FDA-Public Use
  Company Number: ZA-SAKK-2018SA188300AA

PATIENT
  Age: 45 Year
  Sex: Male

DRUGS (8)
  1. ASPAVOR [Concomitant]
     Active Substance: ATORVASTATIN
     Dosage: 40 MG, QD
     Dates: start: 20180101
  2. OPTISULIN (INSULIN GLARGINE) [Suspect]
     Active Substance: INSULIN GLARGINE
     Dosage: 32 DF, HS
     Dates: start: 20180705
  3. TOUJEO [Suspect]
     Active Substance: INSULIN GLARGINE
  4. OPTISULIN (INSULIN GLARGINE) [Suspect]
     Active Substance: INSULIN GLARGINE
     Indication: TYPE 2 DIABETES MELLITUS
     Dosage: 32 DF, QD
     Dates: start: 20180608
  5. NO STUDY DRUG GIVEN [Suspect]
     Active Substance: UNSPECIFIED INGREDIENT
     Indication: TYPE 2 DIABETES MELLITUS
     Dosage: UNK
  6. DIAFORMIN [Concomitant]
     Active Substance: METFORMIN HYDROCHLORIDE
     Dosage: 1000 MG, Q6H
     Dates: start: 20180608
  7. DIAGLUCIDE [Concomitant]
     Active Substance: GLICLAZIDE
     Dosage: 60 MG, QD
     Dates: start: 20180101
  8. ECOTRIN [Concomitant]
     Active Substance: ASPIRIN
     Dosage: 81 MG, QD
     Dates: start: 20180608

REACTIONS (6)
  - Pain [Not Recovered/Not Resolved]
  - Abdominal discomfort [Not Recovered/Not Resolved]
  - Tonsillectomy [Unknown]
  - Oral pain [Not Recovered/Not Resolved]
  - Influenza [Not Recovered/Not Resolved]
  - Sleep disorder [Not Recovered/Not Resolved]

NARRATIVE: CASE EVENT DATE: 20180621
